FAERS Safety Report 4407066-3 (Version None)
Quarter: 2004Q3

REPORT INFORMATION
  Report Type: 
  Country: None (occurrence: None)
  Receive Date: 20040721
  Receipt Date: 20040713
  Transmission Date: 20050211
  Serious: Yes (Hospitalization)
  Sender: FDA-Public Use
  Company Number: URSO-2004-012

PATIENT
  Age: 62 Year
  Sex: Male

DRUGS (9)
  1. URSODIOL [Suspect]
     Indication: CHOLESTASIS
     Dosage: ?? MG   PO
     Route: 048
     Dates: start: 20001101, end: 20001107
  2. ANPLAG (SARPOGRELATE HYDROCHLORIDE) [Concomitant]
  3. TICLOPIDINE HCL [Concomitant]
  4. BASEN (VOGLIBOSE) [Concomitant]
  5. KINEDAK (EPALRESTAT) [Concomitant]
  6. BLOPRESS (CANDESARTAN CILEXETIL) [Concomitant]
  7. HOECHST RASTINON (TOLBUTAMIDE) [Concomitant]
  8. DORNER (BERAPROST SODIUM) [Concomitant]
  9. SELBEX (TEPRENONE) [Concomitant]

REACTIONS (8)
  - BLOOD ALKALINE PHOSPHATASE INCREASED [None]
  - BLOOD AMINO ACID LEVEL INCREASED [None]
  - CHOLESTASIS [None]
  - HEPATIC FIBROSIS [None]
  - HEPATIC NECROSIS [None]
  - LIVER DISORDER [None]
  - PRURITUS GENERALISED [None]
  - TRANSAMINASES INCREASED [None]
